FAERS Safety Report 6506533-6 (Version None)
Quarter: 2009Q4

REPORT INFORMATION
  Report Type: 
  Country: None (occurrence: None)
  Receive Date: 20091221
  Receipt Date: 20091210
  Transmission Date: 20100525
  Serious: Yes (Other)
  Sender: FDA-Public Use
  Company Number: SE-JNJFOC-20091107207

PATIENT
  Age: 62 Year
  Sex: Male

DRUGS (3)
  1. REMICADE [Suspect]
     Indication: PSORIATIC ARTHROPATHY
     Route: 042
     Dates: start: 20070403, end: 20090226
  2. METHOTREXATE [Concomitant]
  3. COX-1 ANTAGONIST [Concomitant]

REACTIONS (1)
  - GASTROINTESTINAL STROMAL TUMOUR [None]
